FAERS Safety Report 7864669-1 (Version None)
Quarter: 2011Q4

REPORT INFORMATION
  Report Type: 
  Country: None (occurrence: None)
  Receive Date: 20111028
  Receipt Date: 20111017
  Transmission Date: 20120403
  Serious: Yes (Hospitalization, Other)
  Sender: FDA-Public Use
  Company Number: US-RANBAXY-2011RR-48784

PATIENT
  Sex: Male

DRUGS (9)
  1. LEVAQUIN [Suspect]
     Indication: PNEUMONIA
     Dosage: UNK
     Route: 048
     Dates: start: 20081221
  2. LEVAQUIN [Suspect]
     Dosage: 500 MG/DAY
     Route: 048
     Dates: start: 20090608
  3. LEVAQUIN [Suspect]
     Dosage: 25 MG/ML
     Route: 042
     Dates: start: 20081224
  4. CIPROFLOXACIN [Suspect]
     Indication: INTERTRIGO
     Dosage: UNK
     Route: 065
  5. LEVAQUIN [Suspect]
     Indication: EAR INFECTION
     Dosage: 500 MG/DAY
     Route: 048
     Dates: start: 20081224
  6. LEVAQUIN [Suspect]
     Dosage: UNK
     Route: 048
     Dates: start: 20090618
  7. LEVAQUIN [Suspect]
     Dosage: 25 MG/ML
     Route: 042
     Dates: start: 20081223
  8. LEVAQUIN [Suspect]
     Dosage: 500 MG/DAY
     Route: 048
     Dates: start: 20081228
  9. LEVAQUIN [Suspect]
     Dosage: 500 MG, UNK
     Route: 048
     Dates: start: 20090612

REACTIONS (3)
  - TENOSYNOVITIS [None]
  - TENDONITIS [None]
  - TRIGGER FINGER [None]
